FAERS Safety Report 11488369 (Version 1)
Quarter: 2015Q3

REPORT INFORMATION
  Report Type: Spontaneous
  Country: US (occurrence: US)
  Receive Date: 20150909
  Receipt Date: 20150909
  Transmission Date: 20151125
  Serious: Yes (Disabling, Other)
  Sender: FDA-Public Use
  Company Number: US-SANOFI-AVENTIS-2012SA065534

PATIENT
  Age: 58 Year
  Sex: Male

DRUGS (3)
  1. PLAVIX [Suspect]
     Active Substance: CLOPIDOGREL BISULFATE
     Indication: MYOCARDIAL INFARCTION
     Route: 065
     Dates: start: 20040101, end: 20050601
  2. ASPIRIN. [Suspect]
     Active Substance: ASPIRIN
     Route: 065
     Dates: start: 20010101, end: 20050601
  3. PLAVIX [Suspect]
     Active Substance: CLOPIDOGREL BISULFATE
     Indication: TRANSIENT ISCHAEMIC ATTACK
     Route: 065
     Dates: start: 20040101, end: 20050601

REACTIONS (3)
  - Disability [Unknown]
  - Gastric haemorrhage [Unknown]
  - Gastrointestinal haemorrhage [Unknown]

NARRATIVE: CASE EVENT DATE: 20050101
